APPROVED DRUG PRODUCT: PROPOFOL
Active Ingredient: PROPOFOL
Strength: 10MG/ML
Dosage Form/Route: INJECTABLE;INJECTION
Application: A075392 | Product #001
Applicant: TEVA PARENTERAL MEDICINES INC
Approved: Sep 19, 2000 | RLD: No | RS: No | Type: DISCN